FAERS Safety Report 9164789 (Version 2)
Quarter: 2013Q2

REPORT INFORMATION
  Report Type: Spontaneous
  Country: US (occurrence: US)
  Receive Date: 20130315
  Receipt Date: 20130424
  Transmission Date: 20140414
  Serious: Yes (Other)
  Sender: FDA-Public Use
  Company Number: US-PFIZER INC-2013081669

PATIENT
  Sex: Female

DRUGS (3)
  1. GLIPIZIDE [Suspect]
     Indication: BLOOD GLUCOSE INCREASED
     Dosage: UNK
  2. METFORMIN HCL [Suspect]
     Indication: BLOOD GLUCOSE INCREASED
     Dosage: UNK
  3. LANTUS [Suspect]
     Indication: BLOOD GLUCOSE INCREASED
     Dosage: UNK

REACTIONS (2)
  - Drug ineffective [Unknown]
  - Blood glucose increased [Unknown]
